FAERS Safety Report 9107347 (Version 3)
Quarter: 2013Q1

REPORT INFORMATION
  Report Type: Spontaneous
  Country: CN (occurrence: CN)
  Receive Date: 20130221
  Receipt Date: 20130328
  Transmission Date: 20140127
  Serious: Yes (Death)
  Sender: FDA-Public Use
  Company Number: PHHY2013CN017134

PATIENT
  Sex: 0

DRUGS (3)
  1. SEBIVO [Suspect]
     Indication: HEPATIC CIRRHOSIS
     Dosage: 600 MG, PER DAY
     Route: 048
  2. CERIVASTATIN [Concomitant]
     Indication: CARDIOVASCULAR DISORDER
  3. ANTIVIRALS NOS [Concomitant]
     Indication: CHRONIC HEPATITIS B

REACTIONS (4)
  - Rhabdomyolysis [Fatal]
  - Myalgia [Fatal]
  - Hypokinesia [Fatal]
  - Coordination abnormal [Fatal]
